FAERS Safety Report 14621088 (Version 1)
Quarter: 2018Q1

REPORT INFORMATION
  Report Type: Spontaneous
  Country: IT (occurrence: IT)
  Receive Date: 20180310
  Receipt Date: 20180310
  Transmission Date: 20180509
  Serious: Yes (Other)
  Sender: FDA-Public Use
  Company Number: IT-AUROBINDO-AUR-APL-2018-012310

PATIENT
  Age: 81 Year
  Sex: Female

DRUGS (5)
  1. BISOPROLOL [Suspect]
     Active Substance: BISOPROLOL
     Dosage: IN TOTAL
     Route: 048
     Dates: start: 20170826, end: 20170826
  2. PERINDOPRIL [Suspect]
     Active Substance: PERINDOPRIL
     Indication: MEDICATION ERROR
     Dosage: IN TOTAL
     Route: 048
     Dates: start: 20170826, end: 20170826
  3. LASIX-RESERPINE [Concomitant]
     Dosage: ()
     Route: 048
  4. KADIUR [Concomitant]
     Active Substance: BUTHIAZIDE\CANRENOATE POTASSIUM
     Dosage: ()
     Route: 048
  5. LIXIANA [Concomitant]
     Active Substance: EDOXABAN TOSYLATE
     Dosage: ()
     Route: 048

REACTIONS (2)
  - Syncope [Recovering/Resolving]
  - Medication error [Recovering/Resolving]

NARRATIVE: CASE EVENT DATE: 20170826
